FAERS Safety Report 5838769-1 (Version None)
Quarter: 2008Q3

REPORT INFORMATION
  Report Type: 
  Country: None (occurrence: None)
  Receive Date: 20080808
  Receipt Date: 20080730
  Transmission Date: 20090109
  Serious: Yes (Hospitalization)
  Sender: FDA-Public Use
  Company Number: CA-ABBOTT-08P-028-0462727-00

PATIENT
  Sex: Male

DRUGS (9)
  1. LUPRON DEPOT [Suspect]
     Indication: DRUG USE FOR UNKNOWN INDICATION
     Dates: start: 20070101
  2. ASPIRIN AND DIPYRIDAMOLE [Concomitant]
     Indication: CEREBROVASCULAR ACCIDENT
     Route: 048
     Dates: start: 20060101
  3. ASPIRIN AND DIPYRIDAMOLE [Concomitant]
     Indication: PROPHYLAXIS
  4. DIXATRIT [Concomitant]
     Indication: HOT FLUSH
     Route: 048
     Dates: start: 20070201
  5. ACETAMINOPHEN W/ CODEINE [Concomitant]
     Indication: PAIN
     Route: 048
     Dates: start: 20040101
  6. PREGABALIN [Concomitant]
     Indication: NEURALGIA
     Route: 048
     Dates: start: 20040101
  7. CLOPIDOGREL [Concomitant]
     Indication: ANTICOAGULANT THERAPY
     Route: 048
     Dates: start: 20060101
  8. PANCREATIN TRIPLE STRENGTH CAP [Concomitant]
     Indication: DECREASED APPETITE
     Dates: start: 20040101
  9. SENOKOT [Concomitant]
     Indication: DRUG USE FOR UNKNOWN INDICATION

REACTIONS (11)
  - ABDOMINAL PAIN [None]
  - CONSTIPATION [None]
  - CONVULSION [None]
  - DEPRESSION [None]
  - DIARRHOEA [None]
  - HOT FLUSH [None]
  - MEMORY IMPAIRMENT [None]
  - OEDEMA PERIPHERAL [None]
  - RESIDUAL URINE [None]
  - SYNCOPE [None]
  - URINE ANALYSIS ABNORMAL [None]
